FAERS Safety Report 8892155 (Version 1)
Quarter: 2012Q4

REPORT INFORMATION
  Report Type: 
  Country: US (occurrence: US)
  Receive Date: 20121107
  Receipt Date: 20121107
  Transmission Date: 20130627
  Serious: No
  Sender: FDA-Public Use
  Company Number: US-AMGEN-USASP2011057990

PATIENT
  Age: 63 Year
  Sex: Female

DRUGS (8)
  1. ENBREL [Suspect]
     Indication: PRODUCT USED FOR UNKNOWN INDICATION
     Dosage: 50 mg, qwk
  2. LEVOTHYROXIN [Concomitant]
  3. METHOTREXATE [Concomitant]
  4. SPIRONOLACTON [Concomitant]
  5. CHLORTHALIDONE [Concomitant]
  6. FOLIC ACID [Concomitant]
  7. ESTRADIOL [Concomitant]
  8. RELAFEN [Concomitant]

REACTIONS (3)
  - Nausea [Unknown]
  - Fatigue [Unknown]
  - Injection site reaction [Unknown]
